FAERS Safety Report 24019884 (Version 1)
Quarter: 2024Q2

REPORT INFORMATION
  Report Type: Spontaneous
  Country: US (occurrence: US)
  Receive Date: 20240627
  Receipt Date: 20240627
  Transmission Date: 20240716
  Serious: Yes (Hospitalization, Other)
  Sender: FDA-Public Use
  Company Number: US-AMGEN-USASP2024123836

PATIENT
  Age: 33 Year
  Sex: Female

DRUGS (3)
  1. PREDNISONE [Suspect]
     Active Substance: PREDNISONE
     Indication: Acute myeloid leukaemia
     Dosage: UNK
     Route: 065
  2. TACROLIMUS [Concomitant]
     Active Substance: TACROLIMUS
  3. DAPSONE [Concomitant]
     Active Substance: DAPSONE

REACTIONS (4)
  - Pneumomediastinum [Unknown]
  - Subcutaneous emphysema [Unknown]
  - Pneumonia [Unknown]
  - Bronchopulmonary aspergillosis [Unknown]
